FAERS Safety Report 17121516 (Version 1)
Quarter: 2019Q4

REPORT INFORMATION
  Report Type: Spontaneous
  Country: US (occurrence: US)
  Receive Date: 20191206
  Receipt Date: 20191206
  Transmission Date: 20200122
  Serious: Yes (Hospitalization, Other)
  Sender: FDA-Public Use
  Company Number: US-GLAXOSMITHKLINE-US2019GSK218501

PATIENT
  Sex: Male

DRUGS (2)
  1. PREVACID [Suspect]
     Active Substance: LANSOPRAZOLE
     Indication: GASTROOESOPHAGEAL REFLUX DISEASE
     Dosage: 20 MG, BID
     Route: 065
  2. PANTOPRAZOLE [Suspect]
     Active Substance: PANTOPRAZOLE
     Indication: ULCER
     Dosage: 40 MG, BID
     Route: 042

REACTIONS (17)
  - Nephrogenic anaemia [Unknown]
  - Chronic kidney disease [Unknown]
  - Anuria [Unknown]
  - Renal tubular necrosis [Unknown]
  - Chronic kidney disease-mineral and bone disorder [Unknown]
  - End stage renal disease [Unknown]
  - Dialysis [Unknown]
  - Oliguria [Unknown]
  - Renal failure [Unknown]
  - Hypertensive nephropathy [Unknown]
  - Haemodialysis [Unknown]
  - Acute kidney injury [Unknown]
  - Renal impairment [Unknown]
  - Renal injury [Unknown]
  - Kidney small [Unknown]
  - Proteinuria [Unknown]
  - Nephropathy [Unknown]
